FAERS Safety Report 6676135-X (Version None)
Quarter: 2010Q2

REPORT INFORMATION
  Report Type: 
  Country: None (occurrence: None)
  Receive Date: 20100412
  Receipt Date: 20100331
  Transmission Date: 20101027
  Serious: Yes (Hospitalization)
  Sender: FDA-Public Use
  Company Number: FR-PFIZER INC-2010041260

PATIENT
  Age: 3 Year
  Sex: Male
  Weight: 15 kg

DRUGS (4)
  1. CEFPODOXIME PROXETIL [Suspect]
     Indication: EAR INFECTION
     Dosage: UNK MG/ML, UNK
     Route: 048
     Dates: start: 20090910
  2. TRIMEBUTINE [Concomitant]
     Dosage: UNK
     Dates: start: 20090910
  3. ROCEPHIN [Concomitant]
  4. OFLOCET [Concomitant]

REACTIONS (3)
  - ABDOMINAL PAIN [None]
  - PSEUDOMEMBRANOUS COLITIS [None]
  - PYREXIA [None]
